FAERS Safety Report 7491758-6 (Version None)
Quarter: 2011Q2

REPORT INFORMATION
  Report Type: 
  Country: None (occurrence: None)
  Receive Date: 20110512
  Receipt Date: 20110428
  Transmission Date: 20111010
  Serious: Yes (Other)
  Sender: FDA-Public Use
  Company Number: 023551

PATIENT
  Age: 30 Year
  Sex: Female

DRUGS (1)
  1. CIMZIA [Suspect]
     Indication: CROHN'S DISEASE
     Dosage: (400 MG 1X/4 WEEKS SUBCUTANEOUS) ; (200 MG 1X/2 WEEKS, APPROXIMATELY 9-10 MONTHS SUBCUTANEOUS)
     Route: 058

REACTIONS (3)
  - DISEASE RECURRENCE [None]
  - HISTOPLASMOSIS [None]
  - GASTROINTESTINAL DISORDER [None]
